FAERS Safety Report 5123123-0 (Version None)
Quarter: 2006Q4

REPORT INFORMATION
  Report Type: 
  Country: None (occurrence: None)
  Receive Date: 20061009
  Receipt Date: 20060925
  Transmission Date: 20070319
  Serious: Yes (Hospitalization)
  Sender: FDA-Public Use
  Company Number: FR-AVENTIS-200613340FR

PATIENT
  Age: 62 Year
  Sex: Male

DRUGS (11)
  1. LOVENOX [Suspect]
     Route: 058
     Dates: start: 20060812, end: 20060902
  2. RIFADINE                           /00146901/ [Suspect]
     Indication: STAPHYLOCOCCAL INFECTION
     Route: 048
     Dates: start: 20060818, end: 20060901
  3. TARGOCID [Concomitant]
     Indication: STAPHYLOCOCCAL INFECTION
     Route: 042
     Dates: start: 20060829
  4. MOPRAL                             /00661201/ [Concomitant]
     Dates: start: 20060812
  5. XATRAL                             /00975301/ [Concomitant]
     Dates: start: 20060812
  6. MYOLASTAN [Concomitant]
     Dates: start: 20060812
  7. TEMESTA                            /00273201/ [Concomitant]
     Dates: start: 20060812
  8. DOLIPRANE [Concomitant]
     Dates: start: 20060812
  9. TOPALGIC [Concomitant]
     Dates: start: 20060812
  10. SPECIAFOLDINE [Concomitant]
     Dates: start: 20060823
  11. AERIUS                             /01398501/ [Concomitant]
     Dates: start: 20060823

REACTIONS (10)
  - C-REACTIVE PROTEIN INCREASED [None]
  - HAEMOGLOBIN DECREASED [None]
  - LEUKOPENIA [None]
  - PLATELET COUNT DECREASED [None]
  - PRURITUS [None]
  - PYREXIA [None]
  - RASH ERYTHEMATOUS [None]
  - RASH MACULO-PAPULAR [None]
  - THROMBOCYTOPENIA [None]
  - WHITE BLOOD CELL COUNT INCREASED [None]
